FAERS Safety Report 19134783 (Version 1)
Quarter: 2021Q2

REPORT INFORMATION
  Report Type: Spontaneous
  Country: US (occurrence: US)
  Receive Date: 20210414
  Receipt Date: 20210414
  Transmission Date: 20210717
  Serious: No
  Sender: FDA-Public Use
  Company Number: US-SA-2021SA118779

PATIENT
  Sex: Male

DRUGS (1)
  1. KEVZARA [Suspect]
     Active Substance: SARILUMAB
     Indication: PYREXIA
     Dosage: 200 MG, QOW
     Route: 048

REACTIONS (4)
  - Product use in unapproved indication [Unknown]
  - Back pain [Unknown]
  - Incorrect route of product administration [Unknown]
  - Fluid retention [Unknown]
